FAERS Safety Report 7505776-2 (Version None)
Quarter: 2011Q2

REPORT INFORMATION
  Report Type: 
  Country: None (occurrence: None)
  Receive Date: 20110520
  Receipt Date: 20110511
  Transmission Date: 20111010
  Serious: Yes (Hospitalization)
  Sender: FDA-Public Use
  Company Number: B0718665A

PATIENT
  Age: 41 Year
  Sex: Male

DRUGS (1)
  1. ASPIRIN + CAFFEINE+SALICYLAMIDE (FORMULATION UNKNOWN) (ASPIRIN+CAFFEIN [Suspect]

REACTIONS (30)
  - SEPSIS [None]
  - PETECHIAE [None]
  - RASH PUSTULAR [None]
  - ULCER [None]
  - PERICARDIAL EFFUSION [None]
  - STENOTROPHOMONAS INFECTION [None]
  - HYPERHIDROSIS [None]
  - DECREASED APPETITE [None]
  - STAPHYLOCOCCAL INFECTION [None]
  - CALCINOSIS [None]
  - GLOMERULONEPHRITIS ACUTE [None]
  - MYALGIA [None]
  - NAUSEA [None]
  - KLEBSIELLA INFECTION [None]
  - NECROSIS [None]
  - CEREBROVASCULAR ACCIDENT [None]
  - OEDEMA PERIPHERAL [None]
  - HYPERTENSION [None]
  - GENERALISED OEDEMA [None]
  - HAEMATURIA [None]
  - PLEURAL EFFUSION [None]
  - CHILLS [None]
  - PYREXIA [None]
  - ARTHRALGIA [None]
  - VOMITING [None]
  - SUBCUTANEOUS NODULE [None]
  - LYMPHADENOPATHY [None]
  - DRUG ABUSE [None]
  - JOINT SWELLING [None]
  - ENTEROCOCCAL INFECTION [None]
